FAERS Safety Report 8050133-6 (Version None)
Quarter: 2012Q1

REPORT INFORMATION
  Report Type: 
  Country: None (occurrence: None)
  Receive Date: 20120117
  Receipt Date: 20120105
  Transmission Date: 20120608
  Serious: Yes (Hospitalization)
  Sender: FDA-Public Use
  Company Number: JP-MERCK-1201USA01062

PATIENT
  Age: 30 Year
  Sex: Male

DRUGS (4)
  1. AMARYL [Concomitant]
     Indication: DIABETES MELLITUS
     Route: 048
  2. PROPECIA [Suspect]
     Indication: ANDROGENETIC ALOPECIA
     Route: 048
  3. ACTOS [Concomitant]
     Indication: DIABETES MELLITUS
     Route: 048
  4. VOGLIBOSE [Concomitant]
     Indication: DIABETES MELLITUS
     Route: 048

REACTIONS (1)
  - SUPERIOR SAGITTAL SINUS THROMBOSIS [None]
